FAERS Safety Report 6995103-1 (Version None)
Quarter: 2010Q3

REPORT INFORMATION
  Report Type: 
  Country: None (occurrence: None)
  Receive Date: 20100915
  Receipt Date: 20100903
  Transmission Date: 20110219
  Serious: Yes (Hospitalization, Other)
  Sender: FDA-Public Use
  Company Number: DSA_43882_2010

PATIENT
  Sex: Female

DRUGS (5)
  1. CARDIZEM [Suspect]
     Indication: PRODUCT USED FOR UNKNOWN INDICATION
     Dosage: (DF)
  2. AVANDAMET [Suspect]
     Indication: TYPE 2 DIABETES MELLITUS
     Dosage: (1 TABLET QD ORAL)
     Route: 048
     Dates: start: 20080401, end: 20090901
  3. DIGOXIN [Suspect]
     Indication: ATRIAL FIBRILLATION
     Dosage: (250 MG QD ORAL)
     Route: 048
     Dates: start: 20100201
  4. FRUSEMIDE /00032601/ [Suspect]
     Indication: PRODUCT USED FOR UNKNOWN INDICATION
     Dosage: (DF)
  5. MAGNESIUM W/POTASSIUM [Concomitant]

REACTIONS (7)
  - ATRIAL FIBRILLATION [None]
  - DECREASED APPETITE [None]
  - DIARRHOEA [None]
  - ELECTROLYTE IMBALANCE [None]
  - FAECES HARD [None]
  - NAUSEA [None]
  - WEIGHT INCREASED [None]
